FAERS Safety Report 21821997 (Version 1)
Quarter: 2023Q1

REPORT INFORMATION
  Report Type: Report from Study
  Country: US (occurrence: None)
  Receive Date: 20230105
  Receipt Date: 20230105
  Transmission Date: 20230417
  Serious: Yes (Death, Hospitalization)
  Sender: FDA-Public Use
  Company Number: US-ROCHE-3256384

PATIENT
  Sex: Female

DRUGS (2)
  1. TRASTUZUMAB [Suspect]
     Active Substance: TRASTUZUMAB
     Indication: Neoplasm
     Dosage: DATE OF MOST RECENT DOSE OF STUDY DRUG: 15/JUN/2022
     Route: 058
     Dates: start: 20220204
  2. TUCATINIB [Suspect]
     Active Substance: TUCATINIB
     Indication: Neoplasm
     Dosage: DATE OF MOST RECENT DOSE OF STUDY DRUG: 15/JUN/2022
     Route: 048
     Dates: start: 20220204

REACTIONS (1)
  - Myocardial infarction [Fatal]

NARRATIVE: CASE EVENT DATE: 20220708
